FAERS Safety Report 6974393-5 (Version None)
Quarter: 2010Q3

REPORT INFORMATION
  Report Type: 
  Country: None (occurrence: None)
  Receive Date: 20100909
  Receipt Date: 20080313
  Transmission Date: 20110219
  Serious: No
  Sender: FDA-Public Use
  Company Number: US-WYE-H03135108

PATIENT
  Age: 27 Year
  Sex: Male
  Weight: 70.37 kg

DRUGS (6)
  1. PROTONIX [Suspect]
     Indication: GASTROOESOPHAGEAL REFLUX DISEASE
  2. IBUPROFEN [Concomitant]
  3. MINOCYCLINE HCL [Concomitant]
  4. VITAMINS [Concomitant]
  5. LEXAPRO [Concomitant]
  6. PRAVACHOL [Concomitant]

REACTIONS (1)
  - DRUG SCREEN POSITIVE [None]
